FAERS Safety Report 8784713 (Version 1)
Quarter: 2012Q4

REPORT INFORMATION
  Report Type: Spontaneous
  Country: US (occurrence: None)
  Receive Date: 20120907
  Receipt Date: 20120907
  Transmission Date: 20130627
  Serious: No
  Sender: FDA-Public Use
  Company Number: None

PATIENT

DRUGS (1)
  1. LISINOPRIL/HCTZ [Suspect]

REACTIONS (23)
  - Capillary fragility [None]
  - Cough [None]
  - Urinary incontinence [None]
  - Dry mouth [None]
  - Muscle spasms [None]
  - Dizziness [None]
  - Chest discomfort [None]
  - Heart rate increased [None]
  - Restlessness [None]
  - Abdominal pain [None]
  - Dysgeusia [None]
  - Nausea [None]
  - Headache [None]
  - Decreased appetite [None]
  - Contusion [None]
  - Urticaria [None]
  - Dysuria [None]
  - Urine odour abnormal [None]
  - Chromaturia [None]
  - Dyspnoea [None]
  - Fatigue [None]
  - Asthenia [None]
  - Palpitations [None]
